FAERS Safety Report 8340401-2 (Version None)
Quarter: 2012Q2

REPORT INFORMATION
  Report Type: 
  Country: None (occurrence: None)
  Receive Date: 20120507
  Receipt Date: 20090615
  Transmission Date: 20120825
  Serious: Yes (Hospitalization)
  Sender: FDA-Public Use
  Company Number: US-TEVA-2009007310

PATIENT
  Sex: Male

DRUGS (9)
  1. DOXEPIN [Concomitant]
  2. PROPOXYPHENE HYDROCHLORIDE [Concomitant]
  3. DOCUSATE [Concomitant]
  4. TREANDA [Suspect]
     Route: 042
  5. ALBUTEROL [Concomitant]
  6. RITUXIMAB [Suspect]
     Route: 042
  7. VELCADE [Suspect]
     Route: 042
  8. ONDANSETRON [Concomitant]
  9. SODIUM + SENNOSIDES [Concomitant]

REACTIONS (1)
  - FEBRILE NEUTROPENIA [None]
